FAERS Safety Report 12212187 (Version 2)
Quarter: 2016Q2

REPORT INFORMATION
  Report Type: Spontaneous
  Country: US (occurrence: US)
  Receive Date: 20160325
  Receipt Date: 20160414
  Transmission Date: 20160815
  Serious: Yes (Hospitalization)
  Sender: FDA-Public Use
  Company Number: US-BIOMARINAP-US-2016-109279

PATIENT
  Sex: Male
  Weight: 23 kg

DRUGS (1)
  1. VIMIZIM [Suspect]
     Active Substance: ELOSULFASE ALFA
     Indication: MUCOPOLYSACCHARIDOSIS IV
     Dosage: 65 MG, QW
     Route: 042
     Dates: start: 201506

REACTIONS (4)
  - Spinal column stenosis [Recovered/Resolved with Sequelae]
  - Kyphosis congenital [Recovered/Resolved with Sequelae]
  - Decreased appetite [Unknown]
  - Hypoventilation [Recovered/Resolved with Sequelae]
